FAERS Safety Report 15863364 (Version 1)
Quarter: 2019Q1

REPORT INFORMATION
  Report Type: Spontaneous
  Country: US (occurrence: US)
  Receive Date: 20190124
  Receipt Date: 20190124
  Transmission Date: 20190417
  Serious: Yes (Death)
  Sender: FDA-Public Use
  Company Number: US-PERRIGO-19US000775

PATIENT
  Age: 42 Year
  Sex: Female

DRUGS (4)
  1. ALLERGY [Suspect]
     Active Substance: UNSPECIFIED INGREDIENT
     Indication: COMPLETED SUICIDE
     Dosage: UNKNOWN, UNKNOWN
     Route: 048
  2. ACETAMINOPHEN. [Suspect]
     Active Substance: ACETAMINOPHEN
     Indication: COMPLETED SUICIDE
     Dosage: UNKNOWN, UNKNOWN
     Route: 048
  3. SUMATRIPTAN. [Suspect]
     Active Substance: SUMATRIPTAN
     Indication: COMPLETED SUICIDE
     Dosage: UNKNOWN, UNKNOWN
     Route: 048
  4. BENZODIAZEPINE DERIVATIVES [Suspect]
     Active Substance: BENZODIAZEPINE
     Indication: COMPLETED SUICIDE
     Dosage: UNKNOWN, UNKNOWN
     Route: 048

REACTIONS (1)
  - Death [Fatal]
